FAERS Safety Report 16014993 (Version 4)
Quarter: 2023Q1

REPORT INFORMATION
  Report Type: Report from Study
  Country: FR (occurrence: FR)
  Receive Date: 20190227
  Receipt Date: 20230203
  Transmission Date: 20230417
  Serious: Yes (Other)
  Sender: FDA-Public Use
  Company Number: FR-BRISTOL-MYERS SQUIBB COMPANY-BMS-2019-017403

PATIENT
  Age: 73 Year
  Sex: Male
  Weight: 54 kg

DRUGS (3)
  1. NIVOLUMAB [Suspect]
     Active Substance: NIVOLUMAB
     Indication: Trichoblastic carcinoma
     Dosage: 240 MG, UNK
     Dates: start: 20181212, end: 20190206
  2. AVLOCARDYL                         /00030001/ [Concomitant]
     Indication: Hyperthyroidism
     Dosage: UNK
     Route: 048
     Dates: start: 20181226, end: 20190130
  3. TRAMADOL [Concomitant]
     Active Substance: TRAMADOL
     Indication: Product used for unknown indication
     Dosage: UNK
     Route: 048

REACTIONS (1)
  - Encephalitis [Recovered/Resolved]

NARRATIVE: CASE EVENT DATE: 20181230
